FAERS Safety Report 9412375 (Version 1)
Quarter: 2013Q3

REPORT INFORMATION
  Report Type: Spontaneous
  Country: US (occurrence: US)
  Receive Date: 20130722
  Receipt Date: 20130722
  Transmission Date: 20140515
  Serious: Yes (Other)
  Sender: FDA-Public Use
  Company Number: US-ROCHE-1250706

PATIENT
  Age: 62 Year
  Sex: Male

DRUGS (3)
  1. XOLAIR [Suspect]
     Indication: ASTHMA
     Route: 058
  2. FEXOFENADINE [Concomitant]
     Indication: HYPERSENSITIVITY
  3. PROVENTIL [Concomitant]
     Indication: ASTHMA
     Route: 055

REACTIONS (2)
  - Ankylosing spondylitis [Unknown]
  - Osteoarthritis [Not Recovered/Not Resolved]
